FAERS Safety Report 13130125 (Version 2)
Quarter: 2017Q1

REPORT INFORMATION
  Report Type: Spontaneous
  Country: FR (occurrence: FR)
  Receive Date: 20170119
  Receipt Date: 20170228
  Transmission Date: 20170428
  Serious: Yes (Death, Other)
  Sender: FDA-Public Use
  Company Number: FR-ACTELION-A-CH2017-148250

PATIENT
  Age: 78 Year
  Sex: Female

DRUGS (2)
  1. VELETRI [Suspect]
     Active Substance: EPOPROSTENOL
     Dosage: 27 NG/KG, PER MIN
     Route: 042
  2. VELETRI [Suspect]
     Active Substance: EPOPROSTENOL
     Indication: PULMONARY ARTERIAL HYPERTENSION
     Dosage: UNK UNK, PER MIN
     Route: 042
     Dates: start: 201502

REACTIONS (3)
  - Cardiac failure [Unknown]
  - Disease progression [Fatal]
  - Pulmonary arterial hypertension [Fatal]

NARRATIVE: CASE EVENT DATE: 20160803
